FAERS Safety Report 9274825 (Version 5)
Quarter: 2013Q4

REPORT INFORMATION
  Report Type: Spontaneous
  Country: US (occurrence: US)
  Receive Date: 20130507
  Receipt Date: 20131129
  Transmission Date: 20140711
  Serious: Yes (Hospitalization, Congenital Anomaly)
  Sender: FDA-Public Use
  Company Number: US-JNJFOC-20130502536

PATIENT
  Sex: Female

DRUGS (4)
  1. TOPAMAX [Suspect]
     Indication: FOETAL EXPOSURE DURING PREGNANCY
     Dosage: MOTHER DOSING.
     Route: 064
  2. MAXALT [Suspect]
     Indication: FOETAL EXPOSURE DURING PREGNANCY
     Dosage: MOTHER^S DOSING.
     Route: 064
  3. NATAFORT [Concomitant]
     Indication: FOETAL EXPOSURE DURING PREGNANCY
     Dosage: MOTHER^S DOSING.
     Route: 064
  4. NATELLE [Concomitant]
     Indication: FOETAL EXPOSURE DURING PREGNANCY
     Route: 064

REACTIONS (5)
  - Dyspnoea [Recovered/Resolved]
  - Chronic sinusitis [Unknown]
  - Otitis media chronic [Unknown]
  - Cleft lip and palate [Recovering/Resolving]
  - Premature baby [Not Recovered/Not Resolved]
